FAERS Safety Report 20642258 (Version 1)
Quarter: 2022Q1

REPORT INFORMATION
  Report Type: Report from Study
  Country: US (occurrence: US)
  Receive Date: 20220328
  Receipt Date: 20220328
  Transmission Date: 20220423
  Serious: Yes (Hospitalization)
  Sender: FDA-Public Use
  Company Number: US-APELLIS-00896

PATIENT
  Age: 68 Year
  Sex: Female
  Weight: 83.915 kg

DRUGS (15)
  1. EMPAVELI [Suspect]
     Active Substance: PEGCETACOPLAN
     Indication: Paroxysmal nocturnal haemoglobinuria
     Route: 058
     Dates: start: 20210816
  2. EMPAVELI [Suspect]
     Active Substance: PEGCETACOPLAN
     Indication: Paroxysmal nocturnal haemoglobinuria
     Route: 058
     Dates: start: 20210819
  3. EMPAVELI [Suspect]
     Active Substance: PEGCETACOPLAN
     Indication: Paroxysmal nocturnal haemoglobinuria
     Route: 058
     Dates: start: 20210816
  4. EMPAVELI [Suspect]
     Active Substance: PEGCETACOPLAN
     Indication: Paroxysmal nocturnal haemoglobinuria
     Route: 058
     Dates: start: 20210816
  5. EMPAVELI [Suspect]
     Active Substance: PEGCETACOPLAN
     Indication: Paroxysmal nocturnal haemoglobinuria
     Route: 058
     Dates: start: 20210908
  6. 90926 (GLOBALC3Sep21): Prednisone [Concomitant]
     Indication: Product used for unknown indication
  7. 1229896 (GLOBALC3Mar21): Desferal [Concomitant]
     Indication: Product used for unknown indication
  8. 1325800 (GLOBALC3Mar21): Digoxin [Concomitant]
     Indication: Product used for unknown indication
  9. 1523986 (GLOBALC3Mar21): Exjade [Concomitant]
     Indication: Product used for unknown indication
  10. 1325608 (GLOBALC3Mar21): Folic acid [Concomitant]
     Indication: Product used for unknown indication
  11. 1262443 (GLOBALC3Mar21): Lasix [Concomitant]
     Indication: Product used for unknown indication
  12. 2165491 (GLOBALC3Mar21): Latanoprost [Concomitant]
     Indication: Product used for unknown indication
  13. 1326939 (GLOBALC3Mar21): Magnesium [Concomitant]
     Indication: Product used for unknown indication
  14. 1327087 (GLOBALC3Mar21): Metoprolol tartrate [Concomitant]
     Indication: Product used for unknown indication
  15. 4134085 (GLOBALC3Mar21): Soliris [Concomitant]
     Indication: Product used for unknown indication

REACTIONS (7)
  - Headache [Unknown]
  - Injection site extravasation [Unknown]
  - Infusion site haemorrhage [Unknown]
  - Central obesity [Unknown]
  - Infusion site pain [Unknown]
  - Infusion site pruritus [Unknown]
  - Epistaxis [Unknown]

NARRATIVE: CASE EVENT DATE: 20210816
